FAERS Safety Report 6677303-3 (Version None)
Quarter: 2010Q2

REPORT INFORMATION
  Report Type: 
  Country: None (occurrence: None)
  Receive Date: 20100412
  Receipt Date: 20100402
  Transmission Date: 20101027
  Serious: Yes (Other)
  Sender: FDA-Public Use
  Company Number: US-PFIZER INC-2010042803

PATIENT
  Sex: Male
  Weight: 81.633 kg

DRUGS (6)
  1. LIPITOR [Suspect]
     Dosage: UNK
     Route: 048
     Dates: start: 20091221, end: 20100319
  2. SPIRONOLACTONE [Concomitant]
     Dosage: UNK
  3. CARVEDILOL [Concomitant]
     Dosage: UNK
  4. LISINOPRIL [Concomitant]
     Dosage: 10 MG, UNK
  5. PLAVIX [Concomitant]
     Dosage: UNK
  6. ACETYLSALICYLIC ACID [Concomitant]
     Dosage: UNIT DOSE: 2;

REACTIONS (3)
  - CHEST PAIN [None]
  - MYALGIA [None]
  - SCIATICA [None]
